FAERS Safety Report 16422019 (Version 1)
Quarter: 2019Q2

REPORT INFORMATION
  Report Type: Spontaneous
  Country: US (occurrence: US)
  Receive Date: 20190612
  Receipt Date: 20190612
  Transmission Date: 20190711
  Serious: No
  Sender: FDA-Public Use
  Company Number: US-PERRIGO-19US002694

PATIENT
  Sex: Male

DRUGS (12)
  1. SIMVASTATIN. [Concomitant]
     Active Substance: SIMVASTATIN
     Indication: BLOOD CHOLESTEROL INCREASED
     Dosage: UNK
     Route: 065
     Dates: start: 2012
  2. DONEPEZIL. [Concomitant]
     Active Substance: DONEPEZIL
     Indication: PRODUCT USED FOR UNKNOWN INDICATION
     Dosage: 5 MG
     Route: 065
     Dates: start: 2017
  3. LOSARTAN. [Concomitant]
     Active Substance: LOSARTAN
     Indication: HYPERTENSION
     Dosage: 25 MG
     Route: 065
     Dates: start: 2017
  4. MINOXIDIL. [Suspect]
     Active Substance: MINOXIDIL
     Indication: ALOPECIA
     Dosage: COIN SIZED AMOUNT, BID
     Route: 061
     Dates: start: 20110428, end: 20190211
  5. CLOPIDOGREL                        /01220704/ [Concomitant]
     Active Substance: CLOPIDOGREL BESILATE
     Indication: ANTICOAGULANT THERAPY
     Dosage: 75 MG
     Route: 065
     Dates: start: 2012
  6. RYTARY [Concomitant]
     Active Substance: CARBIDOPA\LEVODOPA
     Indication: PARKINSON^S DISEASE
     Dosage: 61.25 MG
     Route: 065
     Dates: start: 2017
  7. SELEGILINE [Concomitant]
     Active Substance: SELEGILINE
     Indication: PRODUCT USED FOR UNKNOWN INDICATION
     Dosage: 5 MG
     Route: 065
     Dates: start: 2016
  8. PROAIR HFA [Concomitant]
     Active Substance: ALBUTEROL SULFATE
     Indication: WHEEZING
     Dosage: PRN
     Route: 065
     Dates: start: 2004
  9. OMEPRAZOLE. [Concomitant]
     Active Substance: OMEPRAZOLE
     Indication: DYSPEPSIA
     Dosage: UNK
     Route: 065
     Dates: start: 2016
  10. MINOXIDIL. [Suspect]
     Active Substance: MINOXIDIL
     Dosage: COIN SIZED AMOUNT, BID
     Route: 061
     Dates: start: 20190212
  11. RYTARY [Concomitant]
     Active Substance: CARBIDOPA\LEVODOPA
     Dosage: 95 MG
     Route: 065
     Dates: start: 2017
  12. FLOVENT [Concomitant]
     Active Substance: FLUTICASONE PROPIONATE
     Indication: PROPHYLAXIS
     Dosage: PRN
     Route: 065
     Dates: start: 2004

REACTIONS (3)
  - Underdose [Unknown]
  - Hair colour changes [Unknown]
  - Inappropriate schedule of product administration [Recovering/Resolving]

NARRATIVE: CASE EVENT DATE: 20110428
